FAERS Safety Report 4490811-9 (Version None)
Quarter: 2004Q4

REPORT INFORMATION
  Report Type: 
  Country: None (occurrence: None)
  Receive Date: 20041102
  Receipt Date: 20041027
  Transmission Date: 20050328
  Serious: Yes (Hospitalization)
  Sender: FDA-Public Use
  Company Number: FR-ROCHE-384485

PATIENT
  Age: 84 Year
  Sex: Female

DRUGS (10)
  1. TICLID [Suspect]
     Indication: STENT PLACEMENT
     Route: 048
     Dates: start: 20040625, end: 20040706
  2. PLAVIX [Suspect]
     Indication: STENT PLACEMENT
     Route: 048
     Dates: start: 20040706, end: 20040708
  3. ALDACTONE [Concomitant]
     Route: 048
  4. LASILIX [Concomitant]
     Route: 048
  5. CORDARONE [Concomitant]
     Route: 048
  6. KARDEGIC [Concomitant]
     Route: 048
  7. LESCOL [Concomitant]
     Route: 048
  8. OMEPRAZOLE [Concomitant]
     Route: 048
  9. TRIATEC [Concomitant]
     Route: 048
  10. LEXOMIL [Concomitant]
     Route: 048

REACTIONS (3)
  - AGRANULOCYTOSIS [None]
  - CONFUSIONAL STATE [None]
  - FATIGUE [None]
